FAERS Safety Report 14309244 (Version 1)
Quarter: 2017Q4

REPORT INFORMATION
  Report Type: Report from Study
  Country: US (occurrence: US)
  Receive Date: 20171220
  Receipt Date: 20171220
  Transmission Date: 20180321
  Serious: No
  Sender: FDA-Public Use
  Company Number: PHEH2017US041082

PATIENT
  Sex: Male
  Weight: 43 kg

DRUGS (1)
  1. OMNITROPE [Suspect]
     Active Substance: SOMATROPIN
     Indication: GROWTH HORMONE DEFICIENCY
     Dosage: 1.8 MG, QD
     Route: 058
     Dates: start: 20110305

REACTIONS (10)
  - Limb injury [Unknown]
  - Sneezing [Unknown]
  - General symptom [Unknown]
  - Eczema [Unknown]
  - Seasonal allergy [Not Recovered/Not Resolved]
  - Injection site bruising [Unknown]
  - Injection site irritation [Unknown]
  - Dermatologic examination abnormal [Not Recovered/Not Resolved]
  - Pain [Unknown]
  - Eye disorder [Unknown]
